FAERS Safety Report 6445255-7 (Version None)
Quarter: 2009Q4

REPORT INFORMATION
  Report Type: 
  Country: None (occurrence: None)
  Receive Date: 20091118
  Receipt Date: 20091020
  Transmission Date: 20100525
  Serious: Yes (Other)
  Sender: FDA-Public Use
  Company Number: US-PFIZER INC-2009279635

PATIENT
  Sex: Female

DRUGS (18)
  1. LYRICA [Suspect]
     Indication: FIBROMYALGIA
     Dosage: UNK
     Dates: start: 20080101
  2. MS CONTIN [Suspect]
     Dosage: 30 MG, 2X/DAY
     Dates: end: 20090428
  3. NEURONTIN [Concomitant]
     Dosage: UNK
  4. ACTONEL [Concomitant]
     Dosage: 35 MG, WEEKLY
  5. ELAVIL [Concomitant]
     Dosage: 25 MG, 1X/DAY
     Dates: start: 20090428
  6. BENADRYL [Concomitant]
     Dosage: 25 MG, EVERY 4 HRS
  7. TEGRETOL [Concomitant]
     Dosage: 200 MG, 1X/DAY
  8. CARISOPRODOL [Concomitant]
     Dosage: 350MG 3 TO 4 TIMES DAILY AS NEEDED
  9. CLONAZEPAM [Concomitant]
     Dosage: 1 MG, 3X/DAY
  10. CYMBALTA [Concomitant]
     Dosage: 60 MG, 1X/DAY
  11. DICLOFENAC SODIUM [Concomitant]
     Dosage: 75 MG, 2X/DAY AS NEEDED
  12. FLAXSEED OIL [Concomitant]
     Dosage: UNK
  13. HYDROCHLOROTHIAZIDE [Concomitant]
     Dosage: 25 MG, 1X/DAY
  14. LIDODERM [Concomitant]
     Dosage: APPLY EVERY 12 HOURS
  15. LUNESTA [Concomitant]
     Dosage: 2 MG, AT BEDTIME AS NEEDED
  16. MORPHINE SULFATE [Concomitant]
     Dosage: 30 MG, 2X/DAY AS NEEDED
  17. METHADONE [Concomitant]
     Dosage: 5 MG, 2X/DAY
     Dates: start: 20090505
  18. SKELAXIN [Concomitant]
     Dosage: 800 MG, 3X/DAY

REACTIONS (12)
  - DISTURBANCE IN ATTENTION [None]
  - FATIGUE [None]
  - HEART RATE INCREASED [None]
  - HYPERSENSITIVITY [None]
  - INTERVERTEBRAL DISC PROTRUSION [None]
  - JOINT SWELLING [None]
  - MUSCLE SPASTICITY [None]
  - MUSCULAR WEAKNESS [None]
  - PAIN [None]
  - SWELLING [None]
  - URTICARIA [None]
  - WEIGHT DECREASED [None]
